FAERS Safety Report 9327935 (Version 1)
Quarter: 2013Q2

REPORT INFORMATION
  Report Type: Spontaneous
  Country: US (occurrence: US)
  Receive Date: 20130604
  Receipt Date: 20130604
  Transmission Date: 20140414
  Serious: No
  Sender: FDA-Public Use
  Company Number: US-SANOFI-AVENTIS-2012SA042125

PATIENT
  Age: 62 Year
  Sex: Male
  Weight: 93 kg

DRUGS (6)
  1. LANTUS [Suspect]
     Indication: TYPE 2 DIABETES MELLITUS
     Dosage: DOSE:36 UNIT(S)
     Route: 058
     Dates: start: 2010
  2. PRAVASTATIN [Concomitant]
  3. METFORMIN [Concomitant]
  4. GLIPIZIDE [Concomitant]
  5. LISINOPRIL [Concomitant]
  6. LEVOTHYROXINE [Concomitant]

REACTIONS (2)
  - Hyperkeratosis [Not Recovered/Not Resolved]
  - Dysstasia [Not Recovered/Not Resolved]
